FAERS Safety Report 23379625 (Version 4)
Quarter: 2024Q2

REPORT INFORMATION
  Report Type: Spontaneous
  Country: FR (occurrence: FR)
  Receive Date: 20240108
  Receipt Date: 20240501
  Transmission Date: 20240716
  Serious: Yes (Death, Hospitalization, Other)
  Sender: FDA-Public Use
  Company Number: FR-IMMUNOCORE, LTD-2023-IMC-002133

PATIENT

DRUGS (14)
  1. TEBENTAFUSP [Suspect]
     Active Substance: TEBENTAFUSP
     Indication: Metastatic ocular melanoma
     Dosage: UNK, DOSE 1
     Dates: start: 20231208
  2. TEBENTAFUSP [Suspect]
     Active Substance: TEBENTAFUSP
     Dosage: UNK, CYCLE 7
     Dates: start: 20231220
  3. KARDEGIC [Concomitant]
     Active Substance: ASPIRIN DL-LYSINE
     Indication: Product used for unknown indication
     Dosage: UNK UNK, QD
  4. RETINOL [Concomitant]
     Active Substance: RETINOL
     Indication: Product used for unknown indication
  5. BIMATOPROST\TIMOLOL [Concomitant]
     Active Substance: BIMATOPROST\TIMOLOL
     Indication: Product used for unknown indication
     Dosage: 1 DROP, QD
  6. CARBOMER [Concomitant]
     Active Substance: CARBOMER
     Indication: Product used for unknown indication
     Dosage: UNK UNK, PRN
  7. ACETAMINOPHEN [Concomitant]
     Active Substance: ACETAMINOPHEN
     Indication: Product used for unknown indication
  8. SKENAN [Concomitant]
     Active Substance: MORPHINE SULFATE
     Indication: Product used for unknown indication
     Dosage: 10 MILLIGRAM, BID
  9. MORPHINE SULFATE [Concomitant]
     Active Substance: MORPHINE SULFATE
     Indication: Pain
     Dosage: 5 MILLIGRAM, Q4H
  10. VOGALENE [Concomitant]
     Active Substance: METOPIMAZINE
     Indication: Product used for unknown indication
     Dosage: 15 MILLIGRAM, BID
  11. POLYETHYLENE GLYCOL 4000 [Concomitant]
     Active Substance: POLYETHYLENE GLYCOL 4000
     Indication: Product used for unknown indication
     Dosage: UNK UNK, QD
  12. NORMACOL [SODIUM PHOSPHATE DIBASIC;SODIUM PHOSPHATE DIBASIC DODECAHYDR [Concomitant]
     Indication: Product used for unknown indication
     Dosage: UNK, PRN
  13. METOCLOPRAMIDE [Concomitant]
     Active Substance: METOCLOPRAMIDE
     Indication: Product used for unknown indication
     Dosage: 10 MILLIGRAM, TID
  14. POTASSIUM BITARTRATE\SODIUM BICARBONATE [Concomitant]
     Active Substance: POTASSIUM BITARTRATE\SODIUM BICARBONATE
     Indication: Product used for unknown indication

REACTIONS (7)
  - Multiple organ dysfunction syndrome [Fatal]
  - Sepsis [Fatal]
  - Pulmonary embolism [Fatal]
  - Hyperthermia [Unknown]
  - Tachycardia [Unknown]
  - Cytokine release syndrome [Unknown]
  - Hypotension [Unknown]

NARRATIVE: CASE EVENT DATE: 20231220
